FAERS Safety Report 19295754 (Version 4)
Quarter: 2021Q4

REPORT INFORMATION
  Report Type: Spontaneous
  Country: US (occurrence: US)
  Receive Date: 20210524
  Receipt Date: 20211006
  Transmission Date: 20220303
  Serious: No
  Sender: FDA-Public Use
  Company Number: US-BIOGEN-2021BI01013598

PATIENT
  Sex: Female

DRUGS (1)
  1. TECFIDERA [Suspect]
     Active Substance: DIMETHYL FUMARATE
     Indication: Multiple sclerosis
     Route: 065
     Dates: start: 20150204, end: 20210628

REACTIONS (3)
  - Diarrhoea [Not Recovered/Not Resolved]
  - Gastric disorder [Recovered/Resolved]
  - Abdominal discomfort [Recovered/Resolved]
